FAERS Safety Report 6914297-7 (Version None)
Quarter: 2010Q3

REPORT INFORMATION
  Report Type: 
  Country: None (occurrence: None)
  Receive Date: 20100809
  Receipt Date: 20100803
  Transmission Date: 20110219
  Serious: Yes (Other)
  Sender: FDA-Public Use
  Company Number: B0668538A

PATIENT
  Sex: Female
  Weight: 67 kg

DRUGS (8)
  1. TYKERB [Suspect]
     Indication: BREAST CANCER
     Dosage: 1250MG PER DAY
     Route: 048
     Dates: start: 20090823, end: 20100130
  2. GLYBURIDE [Concomitant]
     Route: 048
  3. HUMALOG MIX [Concomitant]
     Route: 058
  4. FLUNITRAZEPAM [Concomitant]
     Route: 048
  5. CONTOMIN [Concomitant]
     Route: 048
  6. UNKNOWN DRUG [Concomitant]
     Route: 048
  7. RISPERIDONE [Concomitant]
     Route: 048
  8. TASMOLIN [Concomitant]
     Route: 048

REACTIONS (1)
  - PANCYTOPENIA [None]
